FAERS Safety Report 7271990-7 (Version None)
Quarter: 2011Q1

REPORT INFORMATION
  Report Type: 
  Country: None (occurrence: None)
  Receive Date: 20110203
  Receipt Date: 20110124
  Transmission Date: 20110831
  Serious: Yes (Other)
  Sender: FDA-Public Use
  Company Number: DE-JNJFOC-20110104125

PATIENT
  Age: 71 Year
  Sex: Female
  Weight: 60 kg

DRUGS (8)
  1. FOLIC ACID [Concomitant]
  2. VITAMIN D [Concomitant]
  3. REMICADE [Suspect]
     Indication: RHEUMATOID ARTHRITIS
     Route: 042
  4. REMICADE [Suspect]
     Route: 042
  5. METHOTREXATE [Concomitant]
  6. NOVAMINSULFON [Concomitant]
  7. ARCOXIA [Concomitant]
  8. PREDNISOLONE [Concomitant]

REACTIONS (13)
  - RHABDOMYOLYSIS [None]
  - INJURY [None]
  - THROMBOCYTOPENIA [None]
  - HALLUCINATION [None]
  - DELIRIUM [None]
  - CARDIOVASCULAR INSUFFICIENCY [None]
  - COAGULOPATHY [None]
  - MAJOR DEPRESSION [None]
  - HYPOKALAEMIA [None]
  - HYPERGLYCAEMIA [None]
  - RESPIRATORY FAILURE [None]
  - HYPOPHOSPHATAEMIA [None]
  - ANAEMIA POSTOPERATIVE [None]
